FAERS Safety Report 24537910 (Version 1)
Quarter: 2024Q4

REPORT INFORMATION
  Report Type: Spontaneous
  Country: HU (occurrence: HU)
  Receive Date: 20241023
  Receipt Date: 20241023
  Transmission Date: 20250115
  Serious: Yes (Other)
  Sender: SANDOZ
  Company Number: HU-NOVPHSZ-PHHY2019HU063738

PATIENT
  Sex: Female

DRUGS (2)
  1. FULVESTRANT [Suspect]
     Active Substance: FULVESTRANT
     Indication: Product used for unknown indication
     Dosage: 100 MG, UNK
     Route: 065
  2. IBRANCE [Suspect]
     Active Substance: PALBOCICLIB
     Indication: Product used for unknown indication
     Dosage: 100 MG, UNK
     Route: 065

REACTIONS (3)
  - Electrocardiogram QT prolonged [Unknown]
  - Dyspnoea [Unknown]
  - Renal impairment [Recovering/Resolving]
